FAERS Safety Report 22932096 (Version 7)
Quarter: 2023Q4

REPORT INFORMATION
  Report Type: Report from Study
  Country: CN (occurrence: CN)
  Receive Date: 20230912
  Receipt Date: 20231103
  Transmission Date: 20240109
  Serious: Yes (Hospitalization)
  Sender: FDA-Public Use
  Company Number: CN-002147023-NVSC2023CN191715

PATIENT
  Age: 65 Year
  Sex: Male
  Weight: 66.5 kg

DRUGS (13)
  1. PLUVICTO [Suspect]
     Active Substance: LUTETIUM LU-177 VIPIVOTIDE TETRAXETAN
     Indication: Hormone-refractory prostate cancer
     Dosage: 208.17 MCI, EVERY 6 WEEKS
     Route: 042
     Dates: start: 20230725, end: 20230906
  2. LOCAMETZ [Suspect]
     Active Substance: PSMA-HBED-CC
     Indication: Hormone-refractory prostate cancer
     Dosage: 6.33 MCI, ONCE/SINGLE
     Route: 042
     Dates: start: 20230629
  3. LEVAMLODIPINE BESYLATE [Concomitant]
     Active Substance: LEVAMLODIPINE BESYLATE
     Indication: Hypertension
     Dosage: UNK
     Route: 065
     Dates: start: 2003
  4. VITAMIN B6 [Concomitant]
     Active Substance: PYRIDOXINE HYDROCHLORIDE
     Indication: Decreased appetite
     Dosage: UNK
     Route: 065
     Dates: start: 20230811
  5. SILYBIN [Concomitant]
     Indication: Aspartate aminotransferase increased
     Dosage: 70 MG, TID
     Route: 048
     Dates: start: 20230801
  6. SILYBIN [Concomitant]
     Dosage: 70 MG, TID
     Route: 048
     Dates: start: 20230818, end: 20230818
  7. URSODIOL [Concomitant]
     Active Substance: URSODIOL
     Indication: Aspartate aminotransferase increased
     Dosage: 100 MG, BID
     Route: 048
     Dates: start: 20230801
  8. URSODIOL [Concomitant]
     Active Substance: URSODIOL
     Dosage: 100 MG, BID
     Route: 048
     Dates: start: 20230818, end: 20230818
  9. PHOSPHOLIPID [Concomitant]
     Active Substance: PHOSPHOLIPID
     Indication: Aspartate aminotransferase increased
     Dosage: 456 MG, TID
     Route: 048
     Dates: start: 20230819, end: 20230820
  10. PHOSPHOLIPID [Concomitant]
     Active Substance: PHOSPHOLIPID
     Dosage: UNK
     Route: 065
     Dates: start: 20230821
  11. CEFMETAZOLE [Concomitant]
     Active Substance: CEFMETAZOLE
     Indication: Gingival bleeding
     Dosage: UNK
     Route: 065
     Dates: start: 20230821, end: 20230822
  12. ORNIDAZOLE [Concomitant]
     Active Substance: ORNIDAZOLE
     Indication: Gingival bleeding
     Dosage: UNK
     Route: 065
     Dates: start: 20230821, end: 20230822
  13. HERBALS\DIAMMONIUM GLYCYRRHIZINATE [Concomitant]
     Active Substance: HERBALS\DIAMMONIUM GLYCYRRHIZINATE
     Indication: Product used for unknown indication
     Dosage: 150 MG, TID (ENTERIC-COATED CAPSULE)
     Route: 048
     Dates: start: 20230724, end: 20230731

REACTIONS (1)
  - Liver injury [Not Recovered/Not Resolved]

NARRATIVE: CASE EVENT DATE: 20230831
